FAERS Safety Report 8577421-9 (Version None)
Quarter: 2012Q3

REPORT INFORMATION
  Report Type: 
  Country: None (occurrence: None)
  Receive Date: 20120807
  Receipt Date: 20120725
  Transmission Date: 20120928
  Serious: No
  Sender: FDA-Public Use
  Company Number: US-ASTRAZENECA-2011SE18464

PATIENT
  Age: 53 Year
  Sex: Male
  Weight: 84.4 kg

DRUGS (12)
  1. SEROQUEL [Suspect]
     Route: 048
     Dates: start: 20110101
  2. MORPHINE SULFATE [Concomitant]
     Indication: PAIN
  3. KLONIPINE [Concomitant]
  4. SEROQUEL [Suspect]
     Route: 048
     Dates: start: 20030101
  5. SEROQUEL [Suspect]
     Indication: BIPOLAR DISORDER
     Route: 048
     Dates: start: 20020101, end: 20101201
  6. SEROQUEL [Suspect]
     Route: 048
     Dates: start: 20030101
  7. ELAVIL [Concomitant]
  8. FLEXERIL [Concomitant]
  9. VALIUM [Concomitant]
  10. SEROQUEL [Suspect]
     Indication: DEPRESSION
     Route: 048
     Dates: start: 20020101, end: 20101201
  11. SEROQUEL [Suspect]
     Route: 048
     Dates: start: 20110101
  12. AMBIEN [Concomitant]

REACTIONS (9)
  - NERVOUSNESS [None]
  - SOMNOLENCE [None]
  - DRUG DOSE OMISSION [None]
  - DEPRESSION [None]
  - DIARRHOEA [None]
  - NAUSEA [None]
  - FEELING JITTERY [None]
  - MALAISE [None]
  - MANIA [None]
